FAERS Safety Report 12173628 (Version 1)
Quarter: 2016Q1

REPORT INFORMATION
  Report Type: Spontaneous
  Country: CA (occurrence: None)
  Receive Date: 20160311
  Receipt Date: 20160311
  Transmission Date: 20160526
  Serious: Yes (Disabling)
  Sender: FDA-Public Use
  Company Number: None

PATIENT
  Age: 37 Year
  Sex: Female
  Weight: 65 kg

DRUGS (1)
  1. SEROPHENE [Suspect]
     Active Substance: CLOMIPHENE CITRATE
     Indication: PRODUCT USED FOR UNKNOWN INDICATION
     Dosage: 2 PILLS MORNING, 2 EVENING TWICE DAILY TAKEN BY MOUTH
     Route: 048
     Dates: start: 20140731, end: 20140802

REACTIONS (12)
  - Vitreous floaters [None]
  - Headache [None]
  - Seizure [None]
  - Contraindicated drug administered [None]
  - Hallucination [None]
  - Balance disorder [None]
  - Migraine with aura [None]
  - Retinal tear [None]
  - Dry eye [None]
  - Palpitations [None]
  - Eye pain [None]
  - Photopsia [None]

NARRATIVE: CASE EVENT DATE: 20140831
